FAERS Safety Report 16774619 (Version 3)
Quarter: 2020Q3

REPORT INFORMATION
  Report Type: Spontaneous
  Country: US (occurrence: US)
  Receive Date: 20190905
  Receipt Date: 20200716
  Transmission Date: 20201102
  Serious: Yes (Other)
  Sender: FDA-Public Use
  Company Number: US-TEVA-2019-US-1104231

PATIENT
  Sex: Female

DRUGS (4)
  1. AJOVY [Suspect]
     Active Substance: FREMANEZUMAB-VFRM
     Indication: MIGRAINE
     Route: 065
     Dates: start: 2018, end: 201907
  2. CLARITIN [Concomitant]
     Active Substance: LORATADINE
  3. PROPRANOLOL 10 MG [Concomitant]
     Indication: MIGRAINE
  4. ESTRADIOL 0.5 MG [Concomitant]

REACTIONS (20)
  - Temperature intolerance [Unknown]
  - Vertigo [Not Recovered/Not Resolved]
  - Dizziness [Unknown]
  - Amnesia [Not Recovered/Not Resolved]
  - Slow speech [Not Recovered/Not Resolved]
  - Gait disturbance [Not Recovered/Not Resolved]
  - Muscle spasms [Recovering/Resolving]
  - Mood altered [Not Recovered/Not Resolved]
  - Hypoaesthesia [Not Recovered/Not Resolved]
  - Neuralgia [Recovering/Resolving]
  - Cognitive disorder [Not Recovered/Not Resolved]
  - Speech disorder [Unknown]
  - Disturbance in attention [Unknown]
  - Hemiparesis [Not Recovered/Not Resolved]
  - Dysphemia [Not Recovered/Not Resolved]
  - Paraesthesia [Unknown]
  - Balance disorder [Not Recovered/Not Resolved]
  - Coordination abnormal [Unknown]
  - Fatigue [Unknown]
  - Tremor [Unknown]
